FAERS Safety Report 4623416-7 (Version None)
Quarter: 2005Q1

REPORT INFORMATION
  Report Type: 
  Country: None (occurrence: None)
  Receive Date: 20050330
  Receipt Date: 20050317
  Transmission Date: 20050727
  Serious: Yes (Death, Hospitalization)
  Sender: FDA-Public Use
  Company Number: TR-MERCK-0503TUR00002

PATIENT
  Sex: Male

DRUGS (4)
  1. CANCIDAS [Suspect]
     Indication: HEPATOSPLENIC CANDIDIASIS
     Route: 065
  2. AMPHOTERICIN B [Concomitant]
     Indication: HEPATOSPLENIC CANDIDIASIS
     Route: 065
  3. AMPHOTERICIN B [Concomitant]
     Route: 065
  4. ANTINEOPLASTIC (UNSPECIFIED) [Concomitant]
     Route: 065

REACTIONS (3)
  - DEATH [None]
  - MULTI-ORGAN FAILURE [None]
  - PNEUMONIA [None]
